FAERS Safety Report 10161137 (Version 1)
Quarter: 2014Q2

REPORT INFORMATION
  Report Type: Spontaneous
  Country: US (occurrence: US)
  Receive Date: 20140508
  Receipt Date: 20140508
  Transmission Date: 20141212
  Serious: No
  Sender: FDA-Public Use
  Company Number: US-PFIZER INC-2014125523

PATIENT
  Sex: Female

DRUGS (5)
  1. CELEBREX [Suspect]
     Indication: ARTHRITIS
     Dosage: 200 MG, UNK
     Dates: start: 2014
  2. CELEBREX [Suspect]
     Indication: ARTHRALGIA
  3. CELEBREX [Suspect]
     Indication: BONE DISORDER
  4. BENAZEPRIL HYDROCHLORIDE/HYDROCHLOROTHIAZIDE [Concomitant]
     Indication: DIURETIC THERAPY
     Dosage: [BENAZEPRIL HYDROCHLORIDE 20MG/ HYDROCHLOROTHIAZIDE 25MG], DAILY
  5. NEXIUM [Concomitant]
     Dosage: UNK, AS NEEDED

REACTIONS (3)
  - Pharyngeal oedema [Unknown]
  - Oropharyngeal pain [Unknown]
  - Dysphagia [Unknown]
